FAERS Safety Report 6204442-3 (Version None)
Quarter: 2009Q2

REPORT INFORMATION
  Report Type: 
  Country: None (occurrence: None)
  Receive Date: 20090521
  Receipt Date: 20090320
  Transmission Date: 20091009
  Serious: Yes (Death)
  Sender: FDA-Public Use
  Company Number: 20090094

PATIENT
  Age: 86 Year
  Sex: Male
  Weight: 56 kg

DRUGS (6)
  1. VENOFER [Suspect]
     Indication: IRON DEFICIENCY ANAEMIA
     Dosage: 100MG TWICE/11/9 AND 12, 2008
  2. INJECTAFER (FERRIC CARBOXYMALTOSE) [Suspect]
     Indication: IRON DEFICIENCY ANAEMIA
     Dosage: 500 MG ONCE
     Dates: start: 20081119
  3. SALBUTAMOL SULFATE [Concomitant]
  4. BUDESONIDUM [Concomitant]
  5. IPRATROPIL BROMIDUM [Concomitant]
  6. FUROSEMID [Concomitant]

REACTIONS (11)
  - ACUTE HEPATIC FAILURE [None]
  - BLOOD CREATININE INCREASED [None]
  - BODY TEMPERATURE INCREASED [None]
  - BRONCHOPNEUMONIA [None]
  - DYSPNOEA [None]
  - HEPATIC ENCEPHALOPATHY [None]
  - HEPATIC NECROSIS [None]
  - OEDEMA PERIPHERAL [None]
  - RIGHT VENTRICULAR FAILURE [None]
  - SHOCK [None]
  - SOMNOLENCE [None]
